FAERS Safety Report 16829552 (Version 1)
Quarter: 2019Q3

REPORT INFORMATION
  Report Type: Spontaneous
  Country: US (occurrence: US)
  Receive Date: 20190919
  Receipt Date: 20190919
  Transmission Date: 20191005
  Serious: No
  Sender: FDA-Public Use
  Company Number: US-MAYNE PHARMA-2019MYN000290

PATIENT

DRUGS (2)
  1. FABIOR [Suspect]
     Active Substance: TAZAROTENE
     Indication: ACNE
     Dosage: UNK, QD
     Route: 061
     Dates: start: 20190406, end: 20190407
  2. FABIOR [Suspect]
     Active Substance: TAZAROTENE
     Indication: HAIR DISORDER

REACTIONS (3)
  - Dyspnoea [Recovered/Resolved]
  - Rash papular [Not Recovered/Not Resolved]
  - Off label use [Unknown]

NARRATIVE: CASE EVENT DATE: 20190406
